FAERS Safety Report 18022241 (Version 2)
Quarter: 2025Q2

REPORT INFORMATION
  Report Type: Spontaneous
  Country: US (occurrence: US)
  Receive Date: 20200714
  Receipt Date: 20250610
  Transmission Date: 20250717
  Serious: Yes (Death, Disabling, Other)
  Sender: PURDUE
  Company Number: US-PURDUE-USA-2020-0155467

PATIENT
  Sex: Male

DRUGS (1)
  1. HYDROCODONE BITARTRATE AND ACETAMINOPHEN [Suspect]
     Active Substance: ACETAMINOPHEN\HYDROCODONE BITARTRATE
     Indication: Product used for unknown indication
     Route: 048

REACTIONS (4)
  - Overdose [Fatal]
  - Drug dependence [Unknown]
  - Imprisonment [Unknown]
  - Judgement impaired [Unknown]
